FAERS Safety Report 4993782-1 (Version None)
Quarter: 2006Q2

REPORT INFORMATION
  Report Type: 
  Country: None (occurrence: None)
  Receive Date: 20060505
  Receipt Date: 20050112
  Transmission Date: 20061013
  Serious: Yes (Hospitalization)
  Sender: FDA-Public Use
  Company Number: US-MERCK-0501USA01945

PATIENT
  Age: 63 Year
  Sex: Male
  Weight: 107 kg

DRUGS (1)
  1. VIOXX [Suspect]
     Indication: ARTHRITIS
     Route: 048
     Dates: start: 20011008

REACTIONS (10)
  - ANGINA PECTORIS [None]
  - AORTIC ANEURYSM [None]
  - ARRHYTHMIA SUPRAVENTRICULAR [None]
  - ARTERIAL OCCLUSIVE DISEASE [None]
  - ARTERIOSCLEROSIS CORONARY ARTERY [None]
  - HYPERLIPIDAEMIA [None]
  - HYPERTENSION [None]
  - OBESITY [None]
  - PAROXYSMAL ARRHYTHMIA [None]
  - SLEEP APNOEA SYNDROME [None]
